FAERS Safety Report 16209531 (Version 1)
Quarter: 2019Q2

REPORT INFORMATION
  Report Type: Spontaneous
  Country: US (occurrence: US)
  Receive Date: 20190417
  Receipt Date: 20190417
  Transmission Date: 20190711
  Serious: Yes (Other)
  Sender: FDA-Public Use
  Company Number: US-AMARIN PHARMA, INC.-2019AMR000125

PATIENT
  Age: 71 Year
  Sex: Female
  Weight: 58.11 kg

DRUGS (5)
  1. AMLODIPINE [Concomitant]
     Active Substance: AMLODIPINE BESYLATE
     Indication: PRODUCT USED FOR UNKNOWN INDICATION
  2. VASCEPA [Suspect]
     Active Substance: ICOSAPENT ETHYL
     Indication: BLOOD TRIGLYCERIDES INCREASED
     Route: 048
     Dates: start: 201601
  3. DIGOXIN. [Concomitant]
     Active Substance: DIGOXIN
     Indication: PULSE ABNORMAL
  4. PRESERVISION [Concomitant]
     Active Substance: MINERALS\VITAMINS
     Indication: VITREOUS FLOATERS
  5. VALSARTAN WITH A DIURETIC [Concomitant]
     Indication: HYPERTENSION

REACTIONS (9)
  - Gingival discomfort [Not Recovered/Not Resolved]
  - Muscle spasms [Not Recovered/Not Resolved]
  - Product physical issue [Unknown]
  - Rash [Not Recovered/Not Resolved]
  - Cerebrovascular accident [Recovered/Resolved with Sequelae]
  - Gingival bleeding [Recovered/Resolved]
  - Arthralgia [Not Recovered/Not Resolved]
  - Product odour abnormal [Unknown]
  - Product colour issue [Unknown]

NARRATIVE: CASE EVENT DATE: 20161207
